FAERS Safety Report 25556603 (Version 1)
Quarter: 2025Q3

REPORT INFORMATION
  Report Type: Spontaneous
  Country: EU (occurrence: EU)
  Receive Date: 20250715
  Receipt Date: 20250715
  Transmission Date: 20251021
  Serious: Yes (Other)
  Sender: MYLAN
  Company Number: None

PATIENT
  Age: 29 Year
  Sex: Male

DRUGS (12)
  1. PAROXETINE [Suspect]
     Active Substance: PAROXETINE
     Indication: Adjustment disorder with depressed mood
     Dosage: 1 DOSAGE FORM, QD
     Dates: start: 202401, end: 202401
  2. PAROXETINE [Suspect]
     Active Substance: PAROXETINE
     Dosage: 1 DOSAGE FORM, QD
     Route: 048
     Dates: start: 202401, end: 202401
  3. PAROXETINE [Suspect]
     Active Substance: PAROXETINE
     Dosage: 1 DOSAGE FORM, QD
     Route: 048
     Dates: start: 202401, end: 202401
  4. PAROXETINE [Suspect]
     Active Substance: PAROXETINE
     Dosage: 1 DOSAGE FORM, QD
     Dates: start: 202401, end: 202401
  5. HULIO [Concomitant]
     Active Substance: ADALIMUMAB-FKJP
     Indication: Ankylosing spondylitis
     Dosage: 1 DOSAGE FORM, QD
  6. HULIO [Concomitant]
     Active Substance: ADALIMUMAB-FKJP
     Dosage: 1 DOSAGE FORM, QD
     Route: 065
  7. HULIO [Concomitant]
     Active Substance: ADALIMUMAB-FKJP
     Dosage: 1 DOSAGE FORM, QD
     Route: 065
  8. HULIO [Concomitant]
     Active Substance: ADALIMUMAB-FKJP
     Dosage: 1 DOSAGE FORM, QD
  9. BUPRENORPHINE [Concomitant]
     Active Substance: BUPRENORPHINE
     Indication: Drug dependence
     Dosage: 1 DOSAGE FORM, QD
  10. BUPRENORPHINE [Concomitant]
     Active Substance: BUPRENORPHINE
     Dosage: 1 DOSAGE FORM, QD
     Route: 065
  11. BUPRENORPHINE [Concomitant]
     Active Substance: BUPRENORPHINE
     Dosage: 1 DOSAGE FORM, QD
     Route: 065
  12. BUPRENORPHINE [Concomitant]
     Active Substance: BUPRENORPHINE
     Dosage: 1 DOSAGE FORM, QD

REACTIONS (1)
  - Toxic skin eruption [Recovered/Resolved]

NARRATIVE: CASE EVENT DATE: 20240101
